FAERS Safety Report 8616873-2 (Version None)
Quarter: 2012Q3

REPORT INFORMATION
  Report Type: 
  Country: None (occurrence: None)
  Receive Date: 20120823
  Receipt Date: 20120810
  Transmission Date: 20120928
  Serious: No
  Sender: FDA-Public Use
  Company Number: US-009507513-1208USA005570

PATIENT

DRUGS (2)
  1. TOPROL-XL [Concomitant]
  2. JANUMET [Suspect]
     Indication: TYPE 2 DIABETES MELLITUS
     Dosage: UNK
     Route: 048
     Dates: start: 20110801

REACTIONS (1)
  - ABDOMINAL DISCOMFORT [None]
